FAERS Safety Report 4340406-2 (Version None)
Quarter: 2004Q2

REPORT INFORMATION
  Report Type: 
  Country: None (occurrence: None)
  Receive Date: 20040414
  Receipt Date: 20040402
  Transmission Date: 20050107
  Serious: Yes (Other)
  Sender: FDA-Public Use
  Company Number: CA-JNJFOC-20040400498

PATIENT
  Age: 48 Year
  Sex: Female

DRUGS (8)
  1. DOXORUBICIN HCL [Suspect]
     Indication: OVARIAN CANCER
     Dosage: 40 MG/M2, 1 IN 4 WEEK, INTRAVENOUS
     Route: 042
     Dates: start: 20021113, end: 20030109
  2. CISPLATIN [Suspect]
     Indication: OVARIAN CANCER
     Dosage: INTRAVENOUS
     Route: 042
  3. GRANISETRON (GRANISETRON) [Concomitant]
  4. DEXAMETHASONE [Concomitant]
  5. UDDER BALM (ALL OTHER NON-THERAPEUTIC PRODUCTS) [Concomitant]
  6. PYRIDOXINE HCL TAB [Concomitant]
  7. MAXERAN (METOCLOPRAMIDE HYDROCHLORIDE) [Concomitant]
  8. KYTRIL [Concomitant]

REACTIONS (4)
  - MALIGNANT NEOPLASM PROGRESSION [None]
  - METASTASES TO LUNG [None]
  - OVARIAN CANCER [None]
  - PULMONARY EMBOLISM [None]
